FAERS Safety Report 24299935 (Version 2)
Quarter: 2024Q4

REPORT INFORMATION
  Report Type: Report from Study
  Country: US (occurrence: US)
  Receive Date: 20240909
  Receipt Date: 20241001
  Transmission Date: 20250115
  Serious: Yes (Other)
  Sender: TAIHO ONCOLOGY INC
  Company Number: US-TAIHOP-2024-000145

PATIENT
  Age: 66 Year
  Sex: Male

DRUGS (1)
  1. LONSURF [Suspect]
     Active Substance: TIPIRACIL HYDROCHLORIDE\TRIFLURIDINE
     Indication: Colon cancer
     Dosage: CYCLE 1 STARTED ON 14/DEC/2023, CURRENT CYCLE UNKNOWN
     Route: 048
     Dates: start: 20231214

REACTIONS (11)
  - Embolic stroke [Unknown]
  - Nausea [Not Recovered/Not Resolved]
  - Neutropenia [Unknown]
  - Neuropathy peripheral [Not Recovered/Not Resolved]
  - Pruritus [Not Recovered/Not Resolved]
  - Skin exfoliation [Not Recovered/Not Resolved]
  - Fatigue [Not Recovered/Not Resolved]
  - White blood cell count decreased [Recovered/Resolved]
  - Tooth disorder [Unknown]
  - Tremor [Not Recovered/Not Resolved]
  - Migraine [Unknown]
